FAERS Safety Report 18185253 (Version 2)
Quarter: 2020Q4

REPORT INFORMATION
  Report Type: Other
  Country: US (occurrence: US)
  Receive Date: 20200824
  Receipt Date: 20201028
  Transmission Date: 20210113
  Serious: Yes (Hospitalization)
  Sender: FDA-Public Use
  Company Number: US-ROCHE-2659594

PATIENT
  Age: 38 Year
  Sex: Male

DRUGS (6)
  1. GABAPENTIN. [Concomitant]
     Active Substance: GABAPENTIN
     Route: 048
  2. TYLENOL EXTRA STRENGTH [Concomitant]
     Active Substance: ACETAMINOPHEN
     Dosage: 2 TABLETS FOR FEVER, 1 TABLET FOR PAIN, AS NEEDED ;ONGOING: YES
     Route: 048
  3. BENADRYL [Concomitant]
     Active Substance: DIPHENHYDRAMINE HYDROCHLORIDE
     Route: 042
  4. DULOXETINE. [Concomitant]
     Active Substance: DULOXETINE
     Indication: DEPRESSION
     Route: 048
     Dates: start: 2012
  5. OCREVUS [Suspect]
     Active Substance: OCRELIZUMAB
     Indication: PRIMARY PROGRESSIVE MULTIPLE SCLEROSIS
     Dosage: FULL DOSE, INFUSION
     Route: 042
     Dates: start: 20190415
  6. TIZANIDINE. [Concomitant]
     Active Substance: TIZANIDINE
     Indication: MUSCLE SPASTICITY
     Route: 048
     Dates: start: 2012

REACTIONS (10)
  - Sepsis [Recovered/Resolved]
  - Flushing [Recovered/Resolved]
  - Urinary tract infection [Recovered/Resolved]
  - Headache [Unknown]
  - Dehydration [Recovered/Resolved]
  - Pyrexia [Unknown]
  - Hypertension [Unknown]
  - White blood cell count increased [Unknown]
  - Pruritus [Recovered/Resolved]
  - Fatigue [Recovered/Resolved]

NARRATIVE: CASE EVENT DATE: 20190415
